FAERS Safety Report 23857951 (Version 1)
Quarter: 2024Q2

REPORT INFORMATION
  Report Type: Spontaneous
  Country: US (occurrence: US)
  Receive Date: 20240515
  Receipt Date: 20240515
  Transmission Date: 20240716
  Serious: No
  Sender: FDA-Public Use
  Company Number: US-HALEON-2174936

PATIENT
  Sex: Female

DRUGS (1)
  1. NICODERM CQ [Suspect]
     Active Substance: NICOTINE
     Indication: Tobacco withdrawal symptoms
     Dosage: EXPDATE:20260930

REACTIONS (2)
  - Drug ineffective [Unknown]
  - Product complaint [Unknown]
